FAERS Safety Report 23610836 (Version 1)
Quarter: 2024Q1

REPORT INFORMATION
  Report Type: Spontaneous
  Country: US (occurrence: US)
  Receive Date: 20240308
  Receipt Date: 20240308
  Transmission Date: 20240410
  Serious: Yes (Other)
  Sender: FDA-Public Use
  Company Number: US-SA-SAC20240307001022

PATIENT
  Sex: Female

DRUGS (8)
  1. DUPIXENT [Suspect]
     Active Substance: DUPILUMAB
     Dosage: 200 MG, QOW
     Route: 058
  2. AUVI-Q [Concomitant]
     Active Substance: EPINEPHRINE
  3. CLINDAMYCIN PHOSPHATE [Concomitant]
     Active Substance: CLINDAMYCIN PHOSPHATE
  4. DAPSONE [Concomitant]
     Active Substance: DAPSONE
  5. SODIUM SULFACETAMIDE [Concomitant]
     Active Substance: SULFACETAMIDE SODIUM
  6. TAZAROTENE [Concomitant]
     Active Substance: TAZAROTENE
  7. TAZORAC [Concomitant]
     Active Substance: TAZAROTENE
  8. VALACYCLOVIR [Concomitant]
     Active Substance: VALACYCLOVIR HYDROCHLORIDE

REACTIONS (2)
  - Anaphylactic reaction [Unknown]
  - Blood immunoglobulin E decreased [Unknown]
